FAERS Safety Report 9507401 (Version 1)
Quarter: 2013Q1

REPORT INFORMATION
  Report Type: Spontaneous
  Country: US (occurrence: None)
  Receive Date: 20130305
  Receipt Date: 20130305
  Transmission Date: 20140127
  Serious: Yes (Other)
  Sender: FDA-Public Use
  Company Number: 163-21880-11060404

PATIENT
  Age: 73 Year
  Sex: Female

DRUGS (11)
  1. REVLIMID [Suspect]
     Indication: MYELOFIBROSIS
     Dosage: 10 MG, FOR 21 DAYS EVERY 28 DAYS, PO
     Route: 048
     Dates: start: 20091125, end: 20100310
  2. PREDNISONE [Suspect]
     Indication: MYELOFIBROSIS
     Dosage: 30 MG, QD, PO
     Route: 048
     Dates: start: 20091125, end: 20100220
  3. AMLODIPINE (AMLODIPINE) [Concomitant]
  4. SERTRALINE (SERTRALINE) [Concomitant]
  5. ANAGRELIDE (ANAGRELIDE) [Concomitant]
  6. HYDROXYUREA (HYDROXYCARBAMIDE) [Concomitant]
  7. HYDRALAZINE (HYDRALAZINE) [Concomitant]
  8. THYROID (THYROID THERAPY) [Concomitant]
  9. LASIX (FUROSEMIDE) [Concomitant]
  10. ASA (ACETYLSALICYLIC ACID) [Concomitant]
  11. PROCRIT [Concomitant]

REACTIONS (4)
  - Gastrointestinal haemorrhage [None]
  - Anaemia [None]
  - Pain in extremity [None]
  - Oedema peripheral [None]
